FAERS Safety Report 23457048 (Version 1)
Quarter: 2024Q1

REPORT INFORMATION
  Report Type: Spontaneous
  Country: US (occurrence: None)
  Receive Date: 20240130
  Receipt Date: 20240130
  Transmission Date: 20240410
  Serious: Yes (Hospitalization)
  Sender: FDA-Public Use
  Company Number: None

PATIENT
  Age: 76 Year
  Sex: Male
  Weight: 94.35 kg

DRUGS (3)
  1. TICE BCG [Suspect]
     Active Substance: BACILLUS CALMETTE-GUERIN SUBSTRAIN TICE LIVE ANTIGEN
     Dates: end: 20240124
  2. ACEBUTOLOL [Concomitant]
     Active Substance: ACEBUTOLOL
  3. ALPRAZOLAM [Concomitant]

REACTIONS (1)
  - Urosepsis [None]

NARRATIVE: CASE EVENT DATE: 20240124
